FAERS Safety Report 20102177 (Version 1)
Quarter: 2021Q4

REPORT INFORMATION
  Report Type: Spontaneous
  Country: US (occurrence: None)
  Receive Date: 20211123
  Receipt Date: 20211123
  Transmission Date: 20220304
  Serious: Yes (Hospitalization)
  Sender: FDA-Public Use
  Company Number: None

PATIENT
  Age: 50 Year
  Sex: Female

DRUGS (7)
  1. VERZENIO [Suspect]
     Active Substance: ABEMACICLIB
     Indication: Breast cancer
     Dosage: FREQUENCY : TWICE A DAY;?
     Route: 048
     Dates: start: 20181221
  2. CIPROFLOXACIN [Concomitant]
     Active Substance: CIPROFLOXACIN
  3. COLESTIPOL [Concomitant]
     Active Substance: COLESTIPOL
  4. FASLODEX [Concomitant]
     Active Substance: FULVESTRANT
  5. INTRAROSA [Concomitant]
     Active Substance: PRASTERONE
  6. PANTOPRAZOLE [Concomitant]
     Active Substance: PANTOPRAZOLE
  7. XIIFAXAN [Concomitant]

REACTIONS (2)
  - Intestinal obstruction [None]
  - Therapy interrupted [None]
